FAERS Safety Report 6475775-0 (Version None)
Quarter: 2009Q4

REPORT INFORMATION
  Report Type: 
  Country: None (occurrence: None)
  Receive Date: 20091204
  Receipt Date: 20091124
  Transmission Date: 20100525
  Serious: Yes (Life-Threatening, Hospitalization, Other)
  Sender: FDA-Public Use
  Company Number: JP-ABBOTT-09P-087-0602523-00

PATIENT
  Sex: Male
  Weight: 64 kg

DRUGS (9)
  1. PRERAN [Suspect]
     Indication: HYPERTENSION
     Route: 048
     Dates: end: 20090929
  2. ATORVASTATIN CALCIUM [Suspect]
     Indication: HYPERLIPIDAEMIA
     Route: 048
     Dates: end: 20090929
  3. OMEPRAZOLE [Suspect]
     Indication: ABDOMINAL PAIN UPPER
     Route: 048
     Dates: end: 20090929
  4. SIGMART [Concomitant]
     Indication: MYOCARDIAL INFARCTION
     Route: 048
  5. ANPLAG [Concomitant]
     Indication: MYOCARDIAL INFARCTION
     Route: 048
  6. MUCOSTA [Concomitant]
     Indication: ABDOMINAL PAIN UPPER
     Route: 048
     Dates: end: 20090929
  7. GLIMICRON [Concomitant]
     Indication: DIABETES MELLITUS
     Route: 048
     Dates: end: 20090929
  8. MYSLEE [Concomitant]
     Indication: INSOMNIA
     Route: 048
     Dates: end: 20090929
  9. MUCODYNE [Concomitant]
     Indication: COUGH
     Route: 048
     Dates: end: 20090929

REACTIONS (1)
  - HEPATIC FUNCTION ABNORMAL [None]
